FAERS Safety Report 9680918 (Version 2)
Quarter: 2014Q1

REPORT INFORMATION
  Report Type: Spontaneous
  Country: CH (occurrence: CH)
  Receive Date: 20131111
  Receipt Date: 20140211
  Transmission Date: 20141002
  Serious: Yes (Other)
  Sender: FDA-Public Use
  Company Number: CH-JNJFOC-20131103487

PATIENT
  Age: 71 Year
  Sex: Female
  Weight: 75 kg

DRUGS (10)
  1. XARELTO [Suspect]
     Indication: CEREBROVASCULAR ACCIDENT PROPHYLAXIS
     Route: 048
     Dates: start: 20130622, end: 20131005
  2. XARELTO [Suspect]
     Indication: ATRIAL FIBRILLATION
     Route: 048
     Dates: start: 20130622, end: 20131005
  3. PANTOPRAZOLE [Concomitant]
     Route: 065
  4. SOTALOL [Concomitant]
     Route: 065
  5. ZANIDIP [Concomitant]
     Route: 065
  6. TRIATEC [Concomitant]
     Route: 065
  7. INEGY [Concomitant]
     Dosage: 10/20MG
     Route: 065
  8. CONDROSULF [Concomitant]
     Route: 065
  9. ESTRADIOL [Concomitant]
     Route: 065
  10. SERESTA [Concomitant]
     Route: 065

REACTIONS (4)
  - Haemolytic anaemia [Recovered/Resolved]
  - Haemoglobin decreased [Unknown]
  - Chromaturia [Unknown]
  - Iron deficiency [Unknown]
